FAERS Safety Report 7286572-0 (Version None)
Quarter: 2011Q1

REPORT INFORMATION
  Report Type: 
  Country: None (occurrence: None)
  Receive Date: 20110210
  Receipt Date: 20110205
  Transmission Date: 20110831
  Serious: No
  Sender: FDA-Public Use
  Company Number: US-PFIZER INC-2011018214

PATIENT
  Sex: Female
  Weight: 59.864 kg

DRUGS (7)
  1. LIPITOR [Suspect]
     Dosage: 80 MG, DAILY
     Route: 048
  2. ALENDRONATE SODIUM [Concomitant]
     Indication: SUPPLEMENTATION THERAPY
     Dosage: 70 MG, WEEKLY
     Route: 048
  3. PLAVIX [Concomitant]
     Dosage: 75 MG, DAILY
     Route: 048
  4. METOPROLOL [Concomitant]
     Dosage: 50 MG, DAILY
     Route: 048
  5. LISINOPRIL [Concomitant]
     Dosage: 2.5 MG, DAILY
     Route: 048
  6. LIPITOR [Suspect]
     Indication: BLOOD CHOLESTEROL INCREASED
     Dosage: UNK
     Route: 048
  7. ASPIRIN [Concomitant]
     Dosage: 81 MG, DAILY
     Route: 048

REACTIONS (1)
  - MEDICATION RESIDUE [None]
